FAERS Safety Report 22182440 (Version 1)
Quarter: 2023Q2

REPORT INFORMATION
  Report Type: Spontaneous
  Country: GB (occurrence: GB)
  Receive Date: 20230406
  Receipt Date: 20230406
  Transmission Date: 20230721
  Serious: Yes (Other)
  Sender: FDA-Public Use
  Company Number: GB-AMGEN-GBRSP2023057182

PATIENT
  Sex: Female

DRUGS (5)
  1. ADALIMUMAB [Suspect]
     Active Substance: ADALIMUMAB
     Indication: Rheumatoid arthritis
     Dosage: 40 MILLIGRAM, Q2WK
     Route: 058
     Dates: start: 202211
  2. DIHYDROCODEINE [Concomitant]
     Active Substance: DIHYDROCODEINE
  3. NAPROXEN [Concomitant]
     Active Substance: NAPROXEN
  4. THYROXINE [Concomitant]
     Active Substance: LEVOTHYROXINE
  5. ACETAMINOPHEN [Concomitant]
     Active Substance: ACETAMINOPHEN

REACTIONS (4)
  - Autoimmune disorder [Unknown]
  - Platelet count abnormal [Unknown]
  - Joint swelling [Unknown]
  - Gait disturbance [Unknown]
